FAERS Safety Report 8008311-8 (Version None)
Quarter: 2011Q4

REPORT INFORMATION
  Report Type: 
  Country: None (occurrence: None)
  Receive Date: 20111227
  Receipt Date: 20111221
  Transmission Date: 20120403
  Serious: Yes (Death)
  Sender: FDA-Public Use
  Company Number: JP-ROCHE-790549

PATIENT
  Sex: Male
  Weight: 56 kg

DRUGS (24)
  1. HARNAL D [Concomitant]
     Route: 048
     Dates: start: 20110406, end: 20110603
  2. CLARITHROMYCIN [Concomitant]
     Route: 048
  3. FLUOROURACIL [Concomitant]
     Dosage: STOP DATE: MAY 2011.
     Route: 041
  4. FLUOROURACIL [Concomitant]
     Route: 040
     Dates: start: 20110523, end: 20110523
  5. NOVORAPID [Concomitant]
     Dosage: NOTE: 6-4-4-0
     Route: 058
     Dates: start: 20110406, end: 20110523
  6. WARFARIN POTASSIUM [Concomitant]
     Route: 048
  7. LANSOPRAZOLE [Concomitant]
     Route: 048
  8. LASIX [Concomitant]
     Route: 048
  9. WARFARIN POTASSIUM [Concomitant]
     Route: 048
     Dates: start: 20110521, end: 20110530
  10. NEOMALLERMIN-TR [Concomitant]
     Route: 048
     Dates: start: 20110508, end: 20110603
  11. KYTRIL [Concomitant]
     Route: 041
     Dates: start: 20110523, end: 20110523
  12. AVASTIN [Suspect]
     Indication: RECTAL CANCER METASTATIC
     Route: 041
     Dates: start: 20110523, end: 20110523
  13. METOPROLOL TARTRATE [Concomitant]
     Route: 048
  14. LOXONIN [Concomitant]
     Route: 048
  15. DIGOXIN [Concomitant]
     Route: 048
  16. OXALIPLATIN [Concomitant]
     Route: 041
     Dates: start: 20110523, end: 20110523
  17. ACECOL [Concomitant]
     Dosage: NOTE: 1-0-0.5-0
     Route: 048
  18. BUP-4 [Concomitant]
     Route: 048
     Dates: start: 20110406, end: 20110603
  19. WARFARIN POTASSIUM [Concomitant]
     Route: 048
  20. AMARYL [Concomitant]
     Route: 048
     Dates: start: 20110406, end: 20110603
  21. WARFARIN POTASSIUM [Concomitant]
     Route: 048
     Dates: start: 20110421, end: 20110520
  22. LEVOLEUCOVORIN CALCIUM [Concomitant]
     Route: 041
     Dates: start: 20110523, end: 20110523
  23. NOVORAPID [Concomitant]
     Dosage: NOTE: 12-0-0-2
     Route: 058
  24. DEXAMETHASONE SODIUM PHOSPHATE [Concomitant]
     Route: 041
     Dates: start: 20110523, end: 20110523

REACTIONS (3)
  - CARDIAC FAILURE [None]
  - PYREXIA [None]
  - CONTUSION [None]
